FAERS Safety Report 7733017-X (Version None)
Quarter: 2011Q3

REPORT INFORMATION
  Report Type: 
  Country: None (occurrence: None)
  Receive Date: 20110902
  Receipt Date: 20110902
  Transmission Date: 20111222
  Serious: Yes (Other)
  Sender: FDA-Public Use
  Company Number: None

PATIENT
  Age: 57 Year
  Sex: Female
  Weight: 81.8 kg

DRUGS (1)
  1. PROPOFOL [Suspect]
     Indication: COLONOSCOPY
     Dates: start: 20110811

REACTIONS (2)
  - DYSPHAGIA [None]
  - CHOKING [None]
